FAERS Safety Report 24424872 (Version 2)
Quarter: 2024Q4

REPORT INFORMATION
  Report Type: Spontaneous
  Country: US (occurrence: US)
  Receive Date: 20241010
  Receipt Date: 20241015
  Transmission Date: 20250115
  Serious: No
  Sender: PFIZER
  Company Number: US-PFIZER INC-202400273736

PATIENT
  Age: 45 Year
  Sex: Female
  Weight: 73.94 kg

DRUGS (4)
  1. LITFULO [Suspect]
     Active Substance: RITLECITINIB TOSYLATE
     Indication: Alopecia
     Dosage: 50 MG, 1X/DAY (IN THE EVENING MOSTLY)
     Route: 048
     Dates: start: 20240814
  2. VITAMIN D2 [Concomitant]
     Active Substance: ERGOCALCIFEROL
  3. TESTOSTERONE [Concomitant]
     Active Substance: TESTOSTERONE
  4. ANASTROZOLE [Concomitant]
     Active Substance: ANASTROZOLE

REACTIONS (3)
  - Hypersensitivity [Recovering/Resolving]
  - Pruritus [Unknown]
  - Intentional product misuse [Unknown]
